FAERS Safety Report 6532274-5 (Version None)
Quarter: 2010Q1

REPORT INFORMATION
  Report Type: 
  Country: None (occurrence: None)
  Receive Date: 20100108
  Receipt Date: 20100104
  Transmission Date: 20100710
  Serious: Yes (Death, Hospitalization)
  Sender: FDA-Public Use
  Company Number: US-PFIZER INC-2010001541

PATIENT
  Age: 50 Year
  Sex: Male

DRUGS (5)
  1. ALPRAZOLAM [Suspect]
     Route: 048
  2. TRAMADOL HCL [Suspect]
     Route: 048
  3. CITALOPRAM [Suspect]
     Route: 048
  4. METHADONE HYDROCHLORIDE [Suspect]
     Route: 048
  5. ETHANOL [Suspect]
     Route: 048

REACTIONS (3)
  - CARDIAC ARREST [None]
  - DRUG ABUSE [None]
  - RESPIRATORY ARREST [None]
